FAERS Safety Report 8694726 (Version 4)
Quarter: 2013Q2

REPORT INFORMATION
  Report Type: Report from Study
  Country: JP (occurrence: JP)
  Receive Date: 20120731
  Receipt Date: 20130425
  Transmission Date: 20140414
  Serious: Yes (Hospitalization, Other)
  Sender: FDA-Public Use
  Company Number: JP-009507513-2012SP029675

PATIENT
  Age: 63 Year
  Sex: Female
  Weight: 47 kg

DRUGS (24)
  1. PEGINTRON [Suspect]
     Indication: CHRONIC HEPATITIS C
     Dosage: 1.5 MICROGRAM PER KILOGRAM, QW
     Route: 058
     Dates: start: 20120315, end: 20120517
  2. REBETOL [Suspect]
     Indication: CHRONIC HEPATITIS C
     Dosage: CUMULATIVE DOSE: 600 MG
     Route: 048
     Dates: start: 20120315, end: 20120329
  3. REBETOL [Suspect]
     Dosage: CUMULATIVE DOSE: 600 MG
     Route: 048
     Dates: start: 20120330, end: 20120412
  4. REBETOL [Suspect]
     Dosage: CUMULATIVE DOSE: 600 MG
     Route: 048
     Dates: start: 20120413, end: 20120517
  5. TELAVIC [Suspect]
     Indication: CHRONIC HEPATITIS C
     Dosage: 2250MG,QD
     Route: 048
     Dates: start: 20120315, end: 20120509
  6. TELAVIC [Suspect]
     Dosage: 1500MG,QD
     Route: 048
     Dates: start: 20120510, end: 20120514
  7. BACILLUS SUBTILIS (+) LACTOBACILLUS ACIDOPHILUS (+) STREPTOCOCCUS FAEC [Concomitant]
     Indication: DIARRHOEA
     Dosage: 3 G, QD
     Route: 048
     Dates: start: 20120419
  8. DICLOFENAC [Concomitant]
     Indication: PYREXIA
     Dosage: 25 MG, QD
     Route: 054
     Dates: start: 20120315
  9. ALLELOCK [Concomitant]
     Dosage: 10 MG, QD
     Route: 048
     Dates: start: 20120319, end: 20120325
  10. DERMOVATE [Concomitant]
     Dosage: UNK, UNKNOWN
     Route: 061
     Dates: start: 20120319, end: 20120329
  11. DERMOVATE [Concomitant]
     Dosage: 40 MG, QD
     Route: 048
     Dates: start: 20120608, end: 20120802
  12. PREDONINE [Concomitant]
     Indication: ENANTHEMA
     Dosage: 20 MG
     Route: 048
     Dates: start: 20120518
  13. RINDERON (BETAMETHASONE) [Concomitant]
     Dosage: 4 MG, UNKNOWN
     Route: 042
     Dates: start: 20120520
  14. PREDONINE [Concomitant]
     Dosage: 50 MG, UNKNOWN
     Route: 048
     Dates: start: 20120524
  15. PREDONINE [Concomitant]
     Dosage: 40 MG, UNKNOWN
     Route: 048
     Dates: start: 20120526
  16. PREDONINE [Concomitant]
     Dosage: 30 MG, UNKNOWN
     Route: 048
     Dates: start: 20120528
  17. BIOFERMIN (BACILLUS SUBTILIS (+) LACTOBACILLUS ACIDOPHILUS (+) STREPTO [Concomitant]
     Indication: DIARRHOEA
     Route: 048
     Dates: start: 20120419
  18. GASTER D [Concomitant]
     Indication: PROPHYLAXIS
     Dosage: 20 MG, QD
     Route: 048
     Dates: start: 20120518, end: 20120521
  19. GASTER D [Concomitant]
     Dosage: 40 MG, UNK
     Route: 048
     Dates: start: 20120608, end: 20120802
  20. ATARAX P [Concomitant]
     Dosage: FORMULATION:POR
     Route: 048
     Dates: start: 20120521, end: 20120527
  21. TALION (BEPOTASTINE BESYLATE) [Concomitant]
     Dosage: 20 MG, QD
     Route: 048
     Dates: start: 20120521, end: 20120726
  22. [THERAPY UNSPECIFIED] [Concomitant]
     Indication: PROPHYLAXIS
     Dosage: 35 MG, QD
     Route: 048
     Dates: start: 20120521, end: 20120721
  23. [THERAPY UNSPECIFIED] [Concomitant]
     Dosage: 35 MG, QD
     Route: 048
     Dates: end: 20120802
  24. TAKEPRON [Concomitant]
     Indication: PROPHYLAXIS
     Dosage: 30 MG, QD
     Route: 048
     Dates: start: 20120521, end: 20120726

REACTIONS (3)
  - Anaemia [Recovered/Resolved]
  - Pyrexia [Recovered/Resolved]
  - Erythema multiforme [Recovered/Resolved]
